FAERS Safety Report 6739537-9 (Version None)
Quarter: 2010Q2

REPORT INFORMATION
  Report Type: 
  Country: None (occurrence: None)
  Receive Date: 20100525
  Receipt Date: 20100521
  Transmission Date: 20101027
  Serious: Yes (Hospitalization)
  Sender: FDA-Public Use
  Company Number: US-GILEAD-2010-0029186

PATIENT
  Sex: Female
  Weight: 85 kg

DRUGS (10)
  1. LETAIRIS [Suspect]
     Indication: PULMONARY ARTERIAL HYPERTENSION
     Route: 048
     Dates: start: 20100315
  2. REVATIO [Concomitant]
  3. ASPIRIN [Concomitant]
  4. LASIX [Concomitant]
  5. ENALAPRIL [Concomitant]
  6. DILTIAZEM [Concomitant]
  7. METFORMIN HCL [Concomitant]
  8. PROTONIX [Concomitant]
  9. SYNTHROID [Concomitant]
  10. PENTOXIL [Concomitant]

REACTIONS (1)
  - PULMONARY ARTERIAL HYPERTENSION [None]
